FAERS Safety Report 25106106 (Version 1)
Quarter: 2025Q1

REPORT INFORMATION
  Report Type: Spontaneous
  Country: US (occurrence: None)
  Receive Date: 20250320
  Receipt Date: 20250320
  Transmission Date: 20250409
  Serious: Yes (unspecified)
  Sender: FDA-CTU
  Company Number: None

PATIENT
  Age: 71 Year
  Sex: Male
  Weight: 68 kg

DRUGS (6)
  1. SPIRONOLACTONE [Suspect]
     Active Substance: SPIRONOLACTONE
     Dosage: FREQUENCY : DAILY;?
     Route: 048
     Dates: end: 20241007
  2. AMLODIPINE [Suspect]
     Active Substance: AMLODIPINE BESYLATE
  3. HYDROCHLOROTHIAZIDE [Suspect]
     Active Substance: HYDROCHLOROTHIAZIDE
  4. LISINOPRIL [Suspect]
     Active Substance: LISINOPRIL
  5. METOPROLOL TARTRATE [Suspect]
     Active Substance: METOPROLOL TARTRATE
  6. TERAZOSIN [Suspect]
     Active Substance: TERAZOSIN HYDROCHLORIDE

REACTIONS (9)
  - Dizziness [None]
  - Hyponatraemia [None]
  - Asthenia [None]
  - Dizziness [None]
  - Gait disturbance [None]
  - Fall [None]
  - Swelling [None]
  - Pain [None]
  - Ulna fracture [None]

NARRATIVE: CASE EVENT DATE: 20241007
